FAERS Safety Report 5530739-6 (Version None)
Quarter: 2007Q4

REPORT INFORMATION
  Report Type: 
  Country: None (occurrence: None)
  Receive Date: 20071128
  Receipt Date: 20071128
  Transmission Date: 20080405
  Serious: Yes (Death)
  Sender: FDA-Public Use
  Company Number: None

PATIENT
  Age: 73 Year
  Sex: Female
  Weight: 70.7611 kg

DRUGS (8)
  1. AVASTIN [Suspect]
     Indication: COLORECTAL CANCER
     Dosage: Q 2 W 329MG - 700MG 10MG/KG 5MG/KG
     Dates: start: 20070221
  2. AVASTIN [Suspect]
     Indication: COLORECTAL CANCER
     Dosage: Q 2 W 329MG - 700MG 10MG/KG 5MG/KG
     Dates: start: 20070410
  3. AVASTIN [Suspect]
     Indication: COLORECTAL CANCER
     Dosage: Q 2 W 329MG - 700MG 10MG/KG 5MG/KG
     Dates: start: 20070501
  4. AVASTIN [Suspect]
     Indication: COLORECTAL CANCER
     Dosage: Q 2 W 329MG - 700MG 10MG/KG 5MG/KG
     Dates: start: 20070515
  5. AVASTIN [Suspect]
     Indication: COLORECTAL CANCER
     Dosage: Q 2 W 329MG - 700MG 10MG/KG 5MG/KG
     Dates: start: 20070529
  6. AVASTIN [Suspect]
     Indication: COLORECTAL CANCER
     Dosage: Q 2 W 329MG - 700MG 10MG/KG 5MG/KG
     Dates: start: 20070619
  7. AVASTIN [Suspect]
     Indication: COLORECTAL CANCER
     Dosage: Q 2 W 329MG - 700MG 10MG/KG 5MG/KG
     Dates: start: 20070717
  8. AVASTIN [Suspect]
     Indication: COLORECTAL CANCER
     Dosage: Q 2 W 329MG - 700MG 10MG/KG 5MG/KG
     Dates: start: 20070821

REACTIONS (5)
  - HYPOXIA [None]
  - LUNG INFILTRATION [None]
  - MYOCARDIAL INFARCTION [None]
  - NO THERAPEUTIC RESPONSE [None]
  - PYREXIA [None]
